FAERS Safety Report 4570540-3 (Version None)
Quarter: 2005Q1

REPORT INFORMATION
  Report Type: 
  Country: None (occurrence: None)
  Receive Date: 20050204
  Receipt Date: 20050131
  Transmission Date: 20050727
  Serious: Yes (Death)
  Sender: FDA-Public Use
  Company Number: PHEH2005US01478

PATIENT
  Sex: Male

DRUGS (2)
  1. CLOZARIL [Suspect]
     Indication: HALLUCINATION
     Dosage: 25 MG, QD
     Route: 048
     Dates: end: 20050121
  2. CLOZAPINE [Suspect]
     Indication: HALLUCINATION
     Dosage: 25 MG, QD
     Dates: start: 20050122

REACTIONS (1)
  - PARKINSON'S DISEASE [None]
